FAERS Safety Report 7091901-7 (Version None)
Quarter: 2010Q4

REPORT INFORMATION
  Report Type: 
  Country: None (occurrence: None)
  Receive Date: 20101109
  Receipt Date: 20101029
  Transmission Date: 20110411
  Serious: Yes (Hospitalization, Other)
  Sender: FDA-Public Use
  Company Number: FI-JNJFOC-20100801478

PATIENT
  Age: 76 Year
  Sex: Male

DRUGS (12)
  1. TAVANIC [Suspect]
     Indication: PNEUMONIA
     Route: 048
  2. ANTIBIOTIC NOS [Suspect]
     Indication: PNEUMONIA
     Route: 065
  3. EMCONCOR [Concomitant]
     Route: 065
  4. EXPROS [Concomitant]
     Route: 065
  5. FURESIS [Concomitant]
     Route: 065
  6. ISMOX [Concomitant]
     Route: 065
  7. KALEORID [Concomitant]
     Route: 065
  8. PARA-TABS [Concomitant]
     Route: 065
  9. PLAVIX [Concomitant]
     Route: 065
  10. SALAZOPYRIN [Concomitant]
     Route: 065
  11. SOMAC [Concomitant]
     Route: 065
  12. SERETIDE [Concomitant]
     Route: 065

REACTIONS (2)
  - MUSCLE ATROPHY [None]
  - TENDON RUPTURE [None]
